FAERS Safety Report 19991336 (Version 12)
Quarter: 2022Q2

REPORT INFORMATION
  Report Type: Report from Study
  Country: TN (occurrence: TN)
  Receive Date: 20211025
  Receipt Date: 20211205
  Transmission Date: 20220720
  Serious: Yes (Other)
  Sender: FDA-Public Use
  Company Number: TN-002147023-NVSC2021TN218258

PATIENT

DRUGS (5)
  1. RUXOLITINIB [Suspect]
     Active Substance: RUXOLITINIB
     Indication: Primary myelofibrosis
     Dosage: 20 MG/KG, BID
     Route: 048
     Dates: start: 20210622
  2. RUXOLITINIB [Suspect]
     Active Substance: RUXOLITINIB
     Dosage: UNK, QD
     Route: 048
  3. RUXOLITINIB [Suspect]
     Active Substance: RUXOLITINIB
     Dosage: 20 MG, BID
     Route: 048
     Dates: start: 20210622
  4. RUXOLITINIB [Suspect]
     Active Substance: RUXOLITINIB
     Dosage: UNK
     Route: 065
     Dates: start: 20220104
  5. RUXOLITINIB [Suspect]
     Active Substance: RUXOLITINIB
     Dosage: 20 MG, BID (1 TABLET 20MG IN THE MORNING + 1 TABLET 20MG IN THE EVENING EVERY DAY)
     Route: 065
     Dates: start: 20220301

REACTIONS (19)
  - Anaemia [Recovering/Resolving]
  - Dysgeusia [Unknown]
  - Bronchitis [Recovered/Resolved]
  - Immunodeficiency [Recovering/Resolving]
  - COVID-19 [Recovered/Resolved]
  - Platelet count decreased [Unknown]
  - Red blood cell count decreased [Unknown]
  - Dizziness [Unknown]
  - Asthenia [Recovered/Resolved]
  - Weight increased [Not Recovered/Not Resolved]
  - Diabetes mellitus [Unknown]
  - Headache [Recovered/Resolved]
  - Immunodeficiency [Recovered/Resolved]
  - Inappropriate schedule of product administration [Unknown]
  - Epistaxis [Recovering/Resolving]
  - Abdominal pain [Not Recovered/Not Resolved]
  - Hot flush [Unknown]
  - Bone pain [Not Recovered/Not Resolved]
  - Arthralgia [Not Recovered/Not Resolved]

NARRATIVE: CASE EVENT DATE: 20210719
